FAERS Safety Report 13585604 (Version 1)
Quarter: 2017Q2

REPORT INFORMATION
  Report Type: Spontaneous
  Country: US (occurrence: US)
  Receive Date: 20170526
  Receipt Date: 20170526
  Transmission Date: 20170830
  Serious: Yes (Other)
  Sender: FDA-Public Use
  Company Number: US-STANDARD HOMEOPATHIC COMPANY-2021271

PATIENT
  Age: 91 Year
  Sex: Male

DRUGS (2)
  1. HYLANDS LEG CRAMPS [Suspect]
     Active Substance: HOMEOPATHICS
     Indication: MUSCLE SPASMS
     Route: 048
     Dates: start: 2017, end: 2017
  2. HYLAND^S LEG CRAMPS PM [Suspect]
     Active Substance: HOMEOPATHICS
     Route: 048
     Dates: start: 2017, end: 2017

REACTIONS (2)
  - Haemorrhage [None]
  - Flatulence [None]

NARRATIVE: CASE EVENT DATE: 201705
